FAERS Safety Report 9708698 (Version 2)
Quarter: 2014Q1

REPORT INFORMATION
  Report Type: Spontaneous
  Country: US (occurrence: US)
  Receive Date: 20131125
  Receipt Date: 20140105
  Transmission Date: 20141002
  Serious: Yes (Other)
  Sender: FDA-Public Use
  Company Number: US-BRISTOL-MYERS SQUIBB COMPANY-19808849

PATIENT
  Age: 64 Year
  Sex: Male
  Weight: 77.1 kg

DRUGS (2)
  1. BYETTA PEN DISPOSABLE [Suspect]
     Indication: TYPE 2 DIABETES MELLITUS
  2. METFORMIN HCL [Suspect]

REACTIONS (4)
  - Upper limb fracture [Unknown]
  - Lower limb fracture [Unknown]
  - Blood glucose increased [Unknown]
  - Product quality issue [Unknown]
